FAERS Safety Report 21140036 (Version 8)
Quarter: 2023Q1

REPORT INFORMATION
  Report Type: Report from Study
  Country: GB (occurrence: GB)
  Receive Date: 20220728
  Receipt Date: 20230303
  Transmission Date: 20230417
  Serious: Yes (Hospitalization, Other)
  Sender: FDA-Public Use
  Company Number: GB-AKCEA THERAPEUTICS, INC.-2022IS001049

PATIENT

DRUGS (13)
  1. TEGSEDI [Suspect]
     Active Substance: INOTERSEN SODIUM
     Indication: Hereditary neuropathic amyloidosis
     Dosage: 284 MILLIGRAM, QW
     Route: 058
     Dates: start: 2019
  2. TEGSEDI [Suspect]
     Active Substance: INOTERSEN SODIUM
     Dosage: 284 MILLIGRAM, QW
     Route: 058
     Dates: start: 20200131
  3. TEGSEDI [Suspect]
     Active Substance: INOTERSEN SODIUM
     Dosage: UNK UNK, QW
     Route: 058
     Dates: start: 20200715
  4. LANSOPRAZOLE [Concomitant]
     Active Substance: LANSOPRAZOLE
     Indication: Product used for unknown indication
     Dosage: 30 MG,QD
     Route: 065
  5. ACETAMINOPHEN [Concomitant]
     Active Substance: ACETAMINOPHEN
     Indication: Product used for unknown indication
     Dosage: 500 MG, 4-6 DAILY
     Route: 065
  6. BUMETANIDE [Concomitant]
     Active Substance: BUMETANIDE
     Indication: Product used for unknown indication
     Dosage: 1 MG, BID
     Route: 065
  7. COCODAMOL [Concomitant]
     Active Substance: ACETAMINOPHEN\CODEINE PHOSPHATE
     Indication: Product used for unknown indication
     Dosage: 30/500MG 1-2 DAILY
     Route: 065
  8. ADCAL                              /00056901/ [Concomitant]
     Indication: Product used for unknown indication
     Dosage: 03 - 2 DAILY
     Route: 065
  9. SPIRONOLACTONE [Concomitant]
     Active Substance: SPIRONOLACTONE
     Indication: Product used for unknown indication
     Dosage: 2.5 MG, OD
     Route: 065
  10. POLYETHYLENE GLYCOL 3350\POTASSIUM CHLORIDE\SODIUM BICARBONATE\SODIUM [Concomitant]
     Active Substance: POLYETHYLENE GLYCOL 3350\POTASSIUM CHLORIDE\SODIUM BICARBONATE\SODIUM CHLORIDE
     Indication: Product used for unknown indication
     Dosage: 3 DAILY
     Route: 065
  11. CENTRUM                            /02217401/ [Concomitant]
     Indication: Product used for unknown indication
     Dosage: UNK, QD
     Route: 065
  12. CARBOXYMETHYLCELLULOSE SODIUM\GLYCERIN [Concomitant]
     Active Substance: CARBOXYMETHYLCELLULOSE SODIUM\GLYCERIN
     Indication: Product used for unknown indication
     Dosage: 0.5%
     Route: 065
  13. BUPRENORPHINE [Concomitant]
     Active Substance: BUPRENORPHINE
     Indication: Back pain
     Dosage: 5 MILLIGRAM, QW
     Route: 065

REACTIONS (28)
  - Glomerulonephritis [Unknown]
  - Glomerular filtration rate decreased [Not Recovered/Not Resolved]
  - Cataract [Unknown]
  - Palpitations [Unknown]
  - Blood pressure increased [Unknown]
  - Gamma-glutamyltransferase abnormal [Unknown]
  - Urine leukocyte esterase positive [Unknown]
  - Nitrite urine present [Unknown]
  - Protein urine present [Unknown]
  - Decreased appetite [Unknown]
  - Urinary tract infection [Not Recovered/Not Resolved]
  - Asthenia [Unknown]
  - Gait disturbance [Unknown]
  - Pain [Unknown]
  - Fatigue [Unknown]
  - Lethargy [Unknown]
  - Hypoaesthesia [Unknown]
  - Pain in extremity [Unknown]
  - Back pain [Not Recovered/Not Resolved]
  - Disease progression [Unknown]
  - Urine protein/creatinine ratio increased [Unknown]
  - Vomiting [Unknown]
  - Dysphagia [Unknown]
  - Constipation [Unknown]
  - Dizziness [Unknown]
  - Sleep disorder [Unknown]
  - Nocturia [Unknown]
  - Oesophageal obstruction [Unknown]

NARRATIVE: CASE EVENT DATE: 20220111
